FAERS Safety Report 15385407 (Version 5)
Quarter: 2019Q2

REPORT INFORMATION
  Report Type: Spontaneous
  Country: JP (occurrence: JP)
  Receive Date: 20180914
  Receipt Date: 20190411
  Transmission Date: 20190711
  Serious: Yes (Death, Hospitalization, Other)
  Sender: FDA-Public Use
  Company Number: PHJP2018JP016243

PATIENT
  Sex: Female

DRUGS (9)
  1. CALONAL [Concomitant]
     Active Substance: ACETAMINOPHEN
     Indication: PRODUCT USED FOR UNKNOWN INDICATION
     Dosage: UNK
     Route: 065
  2. FEBROSOLVIN [Concomitant]
     Indication: PRODUCT USED FOR UNKNOWN INDICATION
     Route: 065
  3. TRAMAL [Concomitant]
     Active Substance: TRAMADOL
     Indication: PRODUCT USED FOR UNKNOWN INDICATION
     Dosage: UNK
     Route: 065
  4. MAGMITT [Concomitant]
     Active Substance: MAGNESIUM OXIDE
     Indication: PRODUCT USED FOR UNKNOWN INDICATION
     Dosage: UNK
     Route: 065
  5. CELECOX [Concomitant]
     Active Substance: CELECOXIB
     Indication: PRODUCT USED FOR UNKNOWN INDICATION
     Dosage: UNK
     Route: 065
  6. PROTECADIN [Concomitant]
     Active Substance: LAFUTIDINE
     Indication: PRODUCT USED FOR UNKNOWN INDICATION
     Dosage: UNK
     Route: 065
  7. VOTRIENT [Suspect]
     Active Substance: PAZOPANIB HYDROCHLORIDE
     Indication: RENAL CELL CARCINOMA
     Dosage: 800 MG, QD
     Route: 048
     Dates: start: 20180813, end: 20180828
  8. VOTRIENT [Suspect]
     Active Substance: PAZOPANIB HYDROCHLORIDE
     Dosage: 800 MG, QD
     Route: 048
     Dates: start: 20180927, end: 20181026
  9. TAMSULOSIN [Concomitant]
     Active Substance: TAMSULOSIN
     Indication: PRODUCT USED FOR UNKNOWN INDICATION
     Dosage: UNK
     Route: 065

REACTIONS (13)
  - Tumour pain [Recovered/Resolved]
  - Renal cell carcinoma [Fatal]
  - Haematoma [Recovered/Resolved]
  - Hepatic haemorrhage [Unknown]
  - Malignant neoplasm progression [Fatal]
  - C-reactive protein increased [Unknown]
  - Tumour haemorrhage [Recovered/Resolved]
  - Haemoglobin decreased [Unknown]
  - Necrosis [Recovered/Resolved]
  - Disseminated intravascular coagulation [Unknown]
  - Metastases to liver [Fatal]
  - Metastases to muscle [Recovered/Resolved]
  - Liver disorder [Unknown]

NARRATIVE: CASE EVENT DATE: 201808
